FAERS Safety Report 4618911-0 (Version None)
Quarter: 2005Q1

REPORT INFORMATION
  Report Type: 
  Country: None (occurrence: None)
  Receive Date: 20050323
  Receipt Date: 20050315
  Transmission Date: 20050727
  Serious: Yes (Hospitalization)
  Sender: FDA-Public Use
  Company Number: 163-20785-05030367

PATIENT
  Age: 57 Year
  Sex: Female

DRUGS (2)
  1. THALOMID [Suspect]
     Indication: MULTIPLE MYELOMA
     Dosage: 50MG TWICE DAILY, ORAL
     Route: 048
     Dates: start: 20030926
  2. TOPROL-XL [Concomitant]

REACTIONS (7)
  - FAECALOMA [None]
  - HYPERCALCAEMIA [None]
  - HYPOKALAEMIA [None]
  - LABORATORY TEST ABNORMAL [None]
  - RECTAL HAEMORRHAGE [None]
  - RENAL FAILURE ACUTE [None]
  - VOMITING [None]
